FAERS Safety Report 8737248 (Version 4)
Quarter: 2018Q4

REPORT INFORMATION
  Report Type: Spontaneous
  Country: US (occurrence: US)
  Receive Date: 20120822
  Receipt Date: 20181210
  Transmission Date: 20190205
  Serious: No
  Sender: FDA-Public Use
  Company Number: US-ASTRAZENECA-2010SE58972

PATIENT
  Age: 71 Year
  Sex: Male
  Weight: 90.7 kg

DRUGS (8)
  1. ASPIRIN. [Concomitant]
     Active Substance: ASPIRIN
     Indication: CARDIAC DISORDER
     Route: 048
     Dates: start: 2006
  2. SYMBICORT [Suspect]
     Active Substance: BUDESONIDE\FORMOTEROL FUMARATE DIHYDRATE
     Indication: CHRONIC OBSTRUCTIVE PULMONARY DISEASE
     Dosage: 160/4.5, ONE PUFFS TWO TIMES A DAY
     Route: 055
  3. TRAMADOL. [Concomitant]
     Active Substance: TRAMADOL
     Indication: BACK PAIN
     Dosage: 50.0MG AS REQUIRED
     Route: 048
  4. TOPROL XL [Suspect]
     Active Substance: METOPROLOL SUCCINATE
     Indication: BLOOD PRESSURE ABNORMAL
     Route: 048
     Dates: start: 2004
  5. HYDROCHLOROTHIAZIDE. [Concomitant]
     Active Substance: HYDROCHLOROTHIAZIDE
     Indication: JOINT SWELLING
     Route: 048
     Dates: start: 2013
  6. SYMBICORT [Suspect]
     Active Substance: BUDESONIDE\FORMOTEROL FUMARATE DIHYDRATE
     Indication: CHRONIC OBSTRUCTIVE PULMONARY DISEASE
     Dosage: 160/4.5, TWO PUFFS TWO TIMES A DAY
     Route: 055
     Dates: start: 2007
  7. TRAMADOL. [Concomitant]
     Active Substance: TRAMADOL
     Indication: BACK PAIN
     Route: 048
  8. AVAPRO [Concomitant]
     Active Substance: IRBESARTAN
     Indication: HYPERTENSION
     Route: 048
     Dates: start: 2004

REACTIONS (30)
  - Emphysema [Unknown]
  - Arthralgia [Unknown]
  - Hypertension [Unknown]
  - Gait disturbance [Unknown]
  - Vertigo [Unknown]
  - Increased upper airway secretion [Unknown]
  - Muscular weakness [Unknown]
  - Peripheral swelling [Unknown]
  - Condition aggravated [Unknown]
  - Dizziness [Unknown]
  - Weight increased [Unknown]
  - Visual field defect [Unknown]
  - Paraesthesia [Unknown]
  - Osteoarthritis [Unknown]
  - Headache [Unknown]
  - Product use issue [Unknown]
  - Wheezing [Unknown]
  - Upper-airway cough syndrome [Unknown]
  - Pain [Recovered/Resolved]
  - Heart valve incompetence [Unknown]
  - Blood pressure abnormal [Unknown]
  - Rash generalised [Recovered/Resolved]
  - Amnesia [Unknown]
  - Balance disorder [Unknown]
  - Muscle swelling [Unknown]
  - Extra dose administered [Unknown]
  - Muscle disorder [Unknown]
  - Body height decreased [Unknown]
  - Abdominal distension [Unknown]
  - Hypotension [Unknown]

NARRATIVE: CASE EVENT DATE: 2007
